FAERS Safety Report 5026523-2 (Version None)
Quarter: 2006Q2

REPORT INFORMATION
  Report Type: 
  Country: None (occurrence: None)
  Receive Date: 20060613
  Receipt Date: 20060613
  Transmission Date: 20061013
  Serious: No
  Sender: FDA-Public Use
  Company Number: None

PATIENT

DRUGS (1)
  1. CLEAR EYES REDNESS RELIEF EYE DROPS - STERILE   0.2 FL OZ   PRESTIGE B [Suspect]
     Indication: ERYTHEMA
     Dosage: 2 DROPS     1X
     Dates: start: 20060203, end: 20060101

REACTIONS (4)
  - ABNORMAL SENSATION IN EYE [None]
  - EYE PAIN [None]
  - THERAPEUTIC PRODUCT CONTAMINATION [None]
  - VITREOUS FLOATERS [None]
